FAERS Safety Report 5840039-2 (Version None)
Quarter: 2008Q3

REPORT INFORMATION
  Report Type: 
  Country: None (occurrence: None)
  Receive Date: 20080811
  Receipt Date: 20070822
  Transmission Date: 20090109
  Serious: Yes (Other)
  Sender: FDA-Public Use
  Company Number: US-BAYER-200711252BWH

PATIENT

DRUGS (1)
  1. APROTININ [Suspect]
     Indication: CARDIAC OPERATION

REACTIONS (1)
  - RENAL FAILURE [None]
